FAERS Safety Report 7325526-2 (Version None)
Quarter: 2011Q1

REPORT INFORMATION
  Report Type: 
  Country: None (occurrence: None)
  Receive Date: 20110302
  Receipt Date: 20110218
  Transmission Date: 20110831
  Serious: Yes (Hospitalization, Other)
  Sender: FDA-Public Use
  Company Number: US-ELI_LILLY_AND_COMPANY-US201101002636

PATIENT
  Sex: Female

DRUGS (18)
  1. FOLIC ACID [Concomitant]
     Dosage: UNK, DAILY (1/D)
  2. VITAMIN B NOS [Concomitant]
     Dosage: UNK, DAILY (1/D)
  3. ZYRTEC [Concomitant]
     Dosage: UNK, DAILY (1/D)
  4. EPIPEN [Concomitant]
     Dosage: UNK, AS NEEDED
  5. VALIUM [Concomitant]
     Indication: CONVULSION
     Dosage: UNK, AS NEEDED
  6. FEVERFEW [Concomitant]
  7. COUMADIN [Concomitant]
     Dosage: 4 MG, DAILY (1/D)
  8. FIBERCON [Concomitant]
     Indication: IRRITABLE BOWEL SYNDROME
     Dosage: UNK, DAILY (1/D)
  9. PROVENTOL [Concomitant]
     Dosage: UNK, UNKNOWN
     Route: 065
  10. ACIPHEX [Concomitant]
     Dosage: UNK, UNKNOWN
     Route: 065
  11. REGLAN [Concomitant]
     Dosage: UNK, UNKNOWN
     Route: 065
  12. FORTEO [Suspect]
     Dosage: 20 UG, DAILY (1/D)
     Route: 058
  13. MIGRANAL [Concomitant]
     Indication: MIGRAINE
     Dosage: UNK, AS NEEDED
     Route: 045
  14. BENADRYL [Concomitant]
     Dosage: UNK, AS NEEDED
  15. FERROUS SULFATE TAB [Concomitant]
     Dosage: UNK, DAILY (1/D)
  16. FORTEO [Suspect]
     Indication: OSTEOPOROSIS
     Dosage: 20 UG, DAILY (1/D)
     Route: 058
     Dates: start: 20090601, end: 20110103
  17. COUMADIN [Concomitant]
     Dosage: UNK, DAILY (1/D)
  18. MORPHINE [Concomitant]
     Dosage: UNK, AS NEEDED

REACTIONS (6)
  - PAIN IN EXTREMITY [None]
  - OEDEMA PERIPHERAL [None]
  - BONE PAIN [None]
  - MYALGIA [None]
  - FEELING HOT [None]
  - DEEP VEIN THROMBOSIS [None]
